FAERS Safety Report 13665484 (Version 2)
Quarter: 2017Q2

REPORT INFORMATION
  Report Type: Spontaneous
  Country: US (occurrence: US)
  Receive Date: 20170619
  Receipt Date: 20170628
  Transmission Date: 20170830
  Serious: Yes (Hospitalization)
  Sender: FDA-Public Use
  Company Number: US-FRESENIUS MEDICAL CARE RENAL THERAPIES GROUP-FMC-1704-000491

PATIENT
  Sex: Female
  Weight: 117 kg

DRUGS (5)
  1. DELFLEX WITH DEXTROSE 2.5% LOW MAGNESIUM LOW CALCIUM [Suspect]
     Active Substance: CALCIUM CHLORIDE\DEXTROSE\MAGNESIUM CHLORIDE\SODIUM CHLORIDE\SODIUM LACTATE
     Indication: END STAGE RENAL DISEASE
     Route: 033
  2. PREDNISONE. [Concomitant]
     Active Substance: PREDNISONE
  3. COREG [Concomitant]
     Active Substance: CARVEDILOL
  4. CLONIDINE. [Concomitant]
     Active Substance: CLONIDINE
  5. LASIX [Concomitant]
     Active Substance: FUROSEMIDE

REACTIONS (2)
  - Sepsis [Recovered/Resolved]
  - Peritonitis bacterial [Recovered/Resolved]
